FAERS Safety Report 6020232-9 (Version None)
Quarter: 2008Q4

REPORT INFORMATION
  Report Type: 
  Country: None (occurrence: None)
  Receive Date: 20081226
  Receipt Date: 20081215
  Transmission Date: 20090506
  Serious: Yes (Other)
  Sender: FDA-Public Use
  Company Number: PHHY2008JP31735

PATIENT

DRUGS (1)
  1. NEORAL [Suspect]
     Indication: INTERSTITIAL LUNG DISEASE
     Dosage: 150 MG/DAY IN 6 DIVIDED DOSES
     Route: 048

REACTIONS (3)
  - BLOOD PRESSURE INCREASED [None]
  - GINGIVAL HYPERTROPHY [None]
  - INTRAOCULAR PRESSURE INCREASED [None]
